FAERS Safety Report 14803534 (Version 8)
Quarter: 2019Q1

REPORT INFORMATION
  Report Type: Spontaneous
  Country: ES (occurrence: ES)
  Receive Date: 20180425
  Receipt Date: 20190114
  Transmission Date: 20190417
  Serious: Yes (Death, Hospitalization)
  Sender: FDA-Public Use
  Company Number: ES-ROCHE-2113394

PATIENT
  Age: 62 Year
  Sex: Male

DRUGS (25)
  1. FLUTICASONE/SALMETEROL [Interacting]
     Active Substance: FLUTICASONE PROPIONATE\SALMETEROL XINAFOATE
     Indication: ASTHMA
     Route: 048
  2. METFORMIN [Interacting]
     Active Substance: METFORMIN HYDROCHLORIDE
     Indication: TYPE 2 DIABETES MELLITUS
     Route: 065
  3. LEVOTIROXINA [Interacting]
     Active Substance: LEVOTHYROXINE
     Indication: HYPOTHYROIDISM
     Dosage: 100-200 MG
     Route: 065
  4. VALPROIC ACID. [Interacting]
     Active Substance: VALPROIC ACID
     Indication: MANIA
     Route: 065
  5. QUETIAPINA [Interacting]
     Active Substance: QUETIAPINE
     Indication: MAJOR DEPRESSION
     Route: 065
  6. QUETIAPINA [Interacting]
     Active Substance: QUETIAPINE
     Indication: SCHIZOPHRENIA
     Dosage: 400 TO 800 MG/DAY
     Route: 065
  7. HALOPERIDOL. [Interacting]
     Active Substance: HALOPERIDOL
     Indication: PSYCHOTIC DISORDER
     Dosage: 1-1-1-0
     Route: 065
  8. METFORMIN [Interacting]
     Active Substance: METFORMIN HYDROCHLORIDE
     Dosage: 3 G/DAY
     Route: 048
  9. LEVOTIROXINA [Interacting]
     Active Substance: LEVOTHYROXINE
     Indication: AGITATION
     Dosage: 100-200 MG
     Route: 065
  10. CLONAZEPAM. [Interacting]
     Active Substance: CLONAZEPAM
     Indication: AGGRESSION
     Route: 065
  11. FLUTICASONE/SALMETEROL [Interacting]
     Active Substance: FLUTICASONE PROPIONATE\SALMETEROL XINAFOATE
     Indication: DYSPNOEA
     Dosage: 2 PUFF
     Route: 065
  12. TIOTROPIO [Interacting]
     Active Substance: TIOTROPIUM BROMIDE
     Route: 065
  13. QUETIAPINA [Interacting]
     Active Substance: QUETIAPINE
     Indication: TYPE 2 DIABETES MELLITUS
     Route: 065
  14. VALPROIC ACID. [Interacting]
     Active Substance: VALPROIC ACID
     Route: 065
  15. CLONAZEPAM. [Suspect]
     Active Substance: CLONAZEPAM
     Indication: EPILEPSY
     Route: 065
  16. CLONAZEPAM. [Interacting]
     Active Substance: CLONAZEPAM
     Dosage: 0.5 MG, 4X PER DAY
     Route: 065
  17. TIOTROPIO [Interacting]
     Active Substance: TIOTROPIUM BROMIDE
     Indication: CHRONIC OBSTRUCTIVE PULMONARY DISEASE
     Dosage: 2 PUFFS
     Route: 065
  18. QUETIAPINA [Interacting]
     Active Substance: QUETIAPINE
     Indication: DEPRESSION
     Route: 065
  19. QUETIAPINA [Interacting]
     Active Substance: QUETIAPINE
     Indication: HYPOTHYROIDISM
  20. LORATADINA [Interacting]
     Active Substance: LORATADINE
     Indication: RHINITIS ALLERGIC
     Route: 065
  21. TIOTROPIO [Interacting]
     Active Substance: TIOTROPIUM BROMIDE
     Route: 065
  22. FLUTICASONE/SALMETEROL [Interacting]
     Active Substance: FLUTICASONE PROPIONATE\SALMETEROL XINAFOATE
     Indication: HYPERGLYCAEMIA
     Route: 048
  23. VALPROIC ACID. [Interacting]
     Active Substance: VALPROIC ACID
     Indication: EPILEPSY
     Route: 065
  24. HALOPERIDOL. [Interacting]
     Active Substance: HALOPERIDOL
     Indication: NERVOUS SYSTEM DISORDER
     Dosage: 10-20 MG
     Route: 065
  25. HALOPERIDOL. [Interacting]
     Active Substance: HALOPERIDOL
     Indication: AGITATION
     Route: 065

REACTIONS (9)
  - Off label use [Unknown]
  - Hyperprolactinaemia [Fatal]
  - Drug interaction [Fatal]
  - Coma [Fatal]
  - Cardiac failure [Fatal]
  - Prescribed overdose [Fatal]
  - Ventricular fibrillation [Fatal]
  - Loss of consciousness [Not Recovered/Not Resolved]
  - Pruritus [Unknown]
